FAERS Safety Report 6650011-0 (Version None)
Quarter: 2010Q1

REPORT INFORMATION
  Report Type: 
  Country: None (occurrence: None)
  Receive Date: 20100325
  Receipt Date: 20100318
  Transmission Date: 20100710
  Serious: Yes (Life-Threatening, Hospitalization, Other)
  Sender: FDA-Public Use
  Company Number: CA-BAYER-201016867NA

PATIENT
  Age: 45 Year
  Sex: Male

DRUGS (3)
  1. BETASERON [Suspect]
     Indication: MULTIPLE SCLEROSIS
     Route: 058
  2. ANTICOAGULANT [Concomitant]
  3. WARFARIN SODIUM [Concomitant]
     Indication: MITRAL VALVE REPLACEMENT

REACTIONS (1)
  - CEREBRAL HAEMORRHAGE [None]
